FAERS Safety Report 4990567-7 (Version None)
Quarter: 2006Q2

REPORT INFORMATION
  Report Type: 
  Country: None (occurrence: None)
  Receive Date: 20060503
  Receipt Date: 20060316
  Transmission Date: 20061013
  Serious: Yes (Death, Other)
  Sender: FDA-Public Use
  Company Number: GB-ABBOTT-06P-167-0329716-00

PATIENT
  Age: 29 Year
  Sex: Female
  Weight: 100 kg

DRUGS (2)
  1. REDUCTIL 10MG [Suspect]
     Indication: OVERWEIGHT
     Dates: start: 20060301, end: 20060315
  2. REDUCTIL 10MG [Suspect]
     Indication: BODY MASS INDEX INCREASED

REACTIONS (1)
  - INTRA-UTERINE DEATH [None]
